FAERS Safety Report 6955086-7 (Version None)
Quarter: 2010Q3

REPORT INFORMATION
  Report Type: 
  Country: None (occurrence: None)
  Receive Date: 20100830
  Receipt Date: 20100819
  Transmission Date: 20110219
  Serious: Yes (Congenital Anomaly)
  Sender: FDA-Public Use
  Company Number: NZ-NOVOPROD-313579

PATIENT
  Sex: Female

DRUGS (2)
  1. NOVORAPID [Suspect]
     Indication: GESTATIONAL DIABETES
     Route: 064
  2. PROTAPHANE [Suspect]
     Indication: GESTATIONAL DIABETES
     Route: 064

REACTIONS (2)
  - DANDY-WALKER SYNDROME [None]
  - PREMATURE BABY [None]
